FAERS Safety Report 4815035-4 (Version None)
Quarter: 2005Q4

REPORT INFORMATION
  Report Type: 
  Country: None (occurrence: None)
  Receive Date: 20051026
  Receipt Date: 20051007
  Transmission Date: 20060501
  Serious: Yes (Life-Threatening)
  Sender: FDA-Public Use
  Company Number: FR_051007276

PATIENT
  Age: 65 Year
  Sex: Male

DRUGS (2)
  1. ALIMTA [Suspect]
     Indication: PLEURAL MESOTHELIOMA
     Dosage: 500 MG/M2 OTHER
  2. CARBOPLATIN [Concomitant]

REACTIONS (4)
  - ANAPHYLACTOID SHOCK [None]
  - CONDITION AGGRAVATED [None]
  - CONJUNCTIVITIS [None]
  - PLEURAL MESOTHELIOMA [None]
